FAERS Safety Report 18916376 (Version 1)
Quarter: 2021Q1

REPORT INFORMATION
  Report Type: Report from Study
  Country: GB (occurrence: JP)
  Receive Date: 20210219
  Receipt Date: 20210219
  Transmission Date: 20210420
  Serious: Yes (Other)
  Sender: FDA-Public Use
  Company Number: JP-ASTELLAS-2021US006187

PATIENT
  Age: 72 Year
  Sex: Female

DRUGS (1)
  1. ERLOTINIB [Suspect]
     Active Substance: ERLOTINIB
     Indication: NON-SMALL CELL LUNG CANCER
     Dosage: UNK UNK, UNKNOWN FREQ.(65100MG IN TOTAL)
     Route: 048
     Dates: start: 20160516, end: 20170724

REACTIONS (6)
  - Ulna fracture [Not Recovered/Not Resolved]
  - Fall [Unknown]
  - Radius fracture [Not Recovered/Not Resolved]
  - Peptic ulcer [Recovered/Resolved]
  - Haemorrhoids [Recovered/Resolved with Sequelae]
  - Irritable bowel syndrome [Recovered/Resolved]

NARRATIVE: CASE EVENT DATE: 20160822
